FAERS Safety Report 16690814 (Version 1)
Quarter: 2019Q3

REPORT INFORMATION
  Report Type: Spontaneous
  Country: CA (occurrence: CA)
  Receive Date: 20190811
  Receipt Date: 20190811
  Transmission Date: 20191004
  Serious: Yes (Other)
  Sender: FDA-Public Use
  Company Number: CA-BEH-2018090268

PATIENT
  Age: 65 Year
  Sex: Female

DRUGS (4)
  1. ACETAMINOPHEN. [Concomitant]
     Active Substance: ACETAMINOPHEN
     Route: 065
  2. PRIVIGEN [Suspect]
     Active Substance: HUMAN IMMUNOGLOBULIN G
     Indication: NEUTROPENIA
     Dosage: 30 G, SINGLE
     Route: 042
  3. GAMMAGARD [Suspect]
     Active Substance: HUMAN IMMUNOGLOBULIN G
     Indication: NEUTROPENIA
     Dosage: UNK
     Route: 042
  4. DIPHENHYDRAMINE. [Concomitant]
     Active Substance: DIPHENHYDRAMINE
     Route: 065

REACTIONS (2)
  - Febrile nonhaemolytic transfusion reaction [Recovered/Resolved]
  - Headache [Recovered/Resolved]
